FAERS Safety Report 6576861-7 (Version None)
Quarter: 2010Q1

REPORT INFORMATION
  Report Type: 
  Country: None (occurrence: None)
  Receive Date: 20100210
  Receipt Date: 20091216
  Transmission Date: 20100710
  Serious: Yes (Hospitalization)
  Sender: FDA-Public Use
  Company Number: A0811662A

PATIENT
  Sex: Male

DRUGS (1)
  1. FLONASE [Suspect]
     Dosage: 50MCG UNKNOWN
     Route: 045

REACTIONS (4)
  - CHOKING [None]
  - LIFE SUPPORT [None]
  - MECHANICAL VENTILATION [None]
  - TRACHEAL DISORDER [None]
